FAERS Safety Report 5525469-0 (Version None)
Quarter: 2007Q4

REPORT INFORMATION
  Report Type: 
  Country: None (occurrence: None)
  Receive Date: 20071119
  Receipt Date: 20071105
  Transmission Date: 20080405
  Serious: Yes (Death, Hospitalization)
  Sender: FDA-Public Use
  Company Number: 13492

PATIENT
  Age: 19 Year
  Sex: Female

DRUGS (14)
  1. CLOFARABINE [Suspect]
     Indication: ACUTE LYMPHOCYTIC LEUKAEMIA
     Dosage: 52 MG/M2 QD X 5 IV
     Route: 042
     Dates: start: 20041123, end: 20041127
  2. MORPHINE [Concomitant]
  3. GANISETRON [Concomitant]
  4. IMIPENEM [Concomitant]
  5. TEICOPLANIN [Concomitant]
  6. ACYCLOVIR [Concomitant]
  7. CASPOFUNGIN [Concomitant]
  8. METHYLPREDNISOLONE [Concomitant]
  9. PARACETAMOL [Concomitant]
  10. TARGOCID [Concomitant]
  11. CEFEPIM [Concomitant]
  12. NICARDIPINE HYDROCHLORIDE [Concomitant]
  13. OMEPRAZOLE [Concomitant]
  14. TRAMADOL HCL [Concomitant]

REACTIONS (9)
  - ALTERED STATE OF CONSCIOUSNESS [None]
  - CONVULSION [None]
  - DISEASE PROGRESSION [None]
  - FUNGAEMIA [None]
  - HEADACHE [None]
  - HYPERTENSION [None]
  - LYMPHOCYTIC LEUKAEMIA [None]
  - MENINGEAL DISORDER [None]
  - PYREXIA [None]
